FAERS Safety Report 5597823-2 (Version None)
Quarter: 2007Q4

REPORT INFORMATION
  Report Type: 
  Country: None (occurrence: None)
  Receive Date: 20071221
  Receipt Date: 20070319
  Transmission Date: 20080405
  Serious: Yes (Hospitalization)
  Sender: FDA-Public Use
  Company Number: US-2007-007218

PATIENT
  Sex: Male

DRUGS (2)
  1. BETAPACE [Suspect]
     Indication: ATRIAL FIBRILLATION
     Dosage: 60 MG, 1 DOSE, ORAL ; 120 MG, ORAL
     Route: 048
     Dates: start: 20000101, end: 20000101
  2. BETAPACE [Suspect]
     Indication: ATRIAL FIBRILLATION
     Dosage: 60 MG, 1 DOSE, ORAL ; 120 MG, ORAL
     Route: 048
     Dates: start: 20000101

REACTIONS (1)
  - ATRIAL FIBRILLATION [None]
